FAERS Safety Report 19422262 (Version 1)
Quarter: 2021Q2

REPORT INFORMATION
  Report Type: Spontaneous
  Country: US (occurrence: US)
  Receive Date: 20210615
  Receipt Date: 20210615
  Transmission Date: 20210717
  Serious: No
  Sender: FDA-Public Use
  Company Number: None

PATIENT
  Age: 47 Year
  Sex: Female
  Weight: 86.18 kg

DRUGS (2)
  1. OTREXUP [Suspect]
     Active Substance: METHOTREXATE
     Indication: POLYMYOSITIS
  2. OTREXUP [Suspect]
     Active Substance: METHOTREXATE
     Indication: POLYMYOSITIS
     Route: 058
     Dates: start: 201810

REACTIONS (2)
  - Therapy interrupted [None]
  - COVID-19 [None]
